FAERS Safety Report 10098894 (Version 1)
Quarter: 2014Q2

REPORT INFORMATION
  Report Type: Spontaneous
  Country: US (occurrence: US)
  Receive Date: 20140423
  Receipt Date: 20140423
  Transmission Date: 20141212
  Serious: No
  Sender: FDA-Public Use
  Company Number: US-NOVEN-14US009105

PATIENT
  Age: 59 Year
  Sex: Female

DRUGS (2)
  1. BRISDELLE [Suspect]
     Indication: HOT FLUSH
     Dosage: 7.5 MG, UNK
     Route: 048
     Dates: start: 20140221
  2. LIPITOR [Concomitant]
     Indication: BLOOD CHOLESTEROL
     Route: 048

REACTIONS (3)
  - Fatigue [Not Recovered/Not Resolved]
  - Drug ineffective [Not Recovered/Not Resolved]
  - Drug dose omission [Not Recovered/Not Resolved]
